FAERS Safety Report 15299490 (Version 1)
Quarter: 2018Q3

REPORT INFORMATION
  Report Type: Spontaneous
  Country: DE (occurrence: DE)
  Receive Date: 20180821
  Receipt Date: 20180821
  Transmission Date: 20181010
  Serious: Yes (Other)
  Sender: FDA-Public Use
  Company Number: DE-TEVA-2018-DE-945300

PATIENT
  Age: 25 Year
  Sex: Male

DRUGS (13)
  1. CLOZAPIN [Suspect]
     Active Substance: CLOZAPINE
     Route: 048
     Dates: start: 20180222
  2. CLOZAPIN [Suspect]
     Active Substance: CLOZAPINE
     Route: 048
     Dates: start: 20180218
  3. CLOZAPIN [Suspect]
     Active Substance: CLOZAPINE
     Route: 048
     Dates: start: 20180220
  4. CLOZAPIN [Suspect]
     Active Substance: CLOZAPINE
     Route: 048
     Dates: start: 20180219
  5. CLOZAPIN [Suspect]
     Active Substance: CLOZAPINE
     Dosage: 25 MILLIGRAM DAILY;
     Route: 048
     Dates: start: 20180215
  6. CLOZAPIN [Suspect]
     Active Substance: CLOZAPINE
     Route: 048
     Dates: start: 20180216
  7. CLOZAPIN [Suspect]
     Active Substance: CLOZAPINE
     Route: 048
     Dates: start: 20180223
  8. AMISULPRID [Suspect]
     Active Substance: AMISULPRIDE
     Dosage: 800 MILLIGRAM DAILY;
     Route: 048
     Dates: start: 20180206
  9. CLOZAPIN [Suspect]
     Active Substance: CLOZAPINE
     Route: 048
     Dates: start: 20180224, end: 20180225
  10. CLOZAPIN [Suspect]
     Active Substance: CLOZAPINE
     Route: 048
     Dates: start: 20180221
  11. CLOZAPIN [Suspect]
     Active Substance: CLOZAPINE
     Route: 048
     Dates: start: 20180217
  12. CLOZAPIN [Suspect]
     Active Substance: CLOZAPINE
     Route: 048
     Dates: start: 20180213, end: 20180214
  13. HALDOL [Suspect]
     Active Substance: HALOPERIDOL
     Dosage: 10?0MG
     Route: 048
     Dates: start: 20180210

REACTIONS (6)
  - Chills [Recovered/Resolved]
  - Abdominal pain [Recovered/Resolved]
  - Diarrhoea [Recovered/Resolved]
  - Somnolence [Recovered/Resolved]
  - Tachycardia [Recovered/Resolved]
  - Pyrexia [Recovered/Resolved]

NARRATIVE: CASE EVENT DATE: 20180224
